FAERS Safety Report 22625632 (Version 6)
Quarter: 2025Q4

REPORT INFORMATION
  Report Type: Report from Study
  Country: JP (occurrence: JP)
  Receive Date: 20230621
  Receipt Date: 20251104
  Transmission Date: 20260118
  Serious: Yes (Death, Hospitalization, Disabling)
  Sender: BIOGEN
  Company Number: JP-BIOGEN-2023BI01210667

PATIENT
  Age: 4 Month
  Sex: Male
  Weight: 4.7 kg

DRUGS (15)
  1. SPINRAZA [Suspect]
     Active Substance: NUSINERSEN
     Indication: Spinal muscular atrophy
     Dates: start: 20211026
  2. SPINRAZA [Suspect]
     Active Substance: NUSINERSEN
     Dates: start: 20220301
  3. SPINRAZA [Suspect]
     Active Substance: NUSINERSEN
  4. SPINRAZA [Suspect]
     Active Substance: NUSINERSEN
  5. SPINRAZA [Suspect]
     Active Substance: NUSINERSEN
  6. SPINRAZA [Suspect]
     Active Substance: NUSINERSEN
  7. SPINRAZA [Suspect]
     Active Substance: NUSINERSEN
  8. SPINRAZA [Suspect]
     Active Substance: NUSINERSEN
     Dates: start: 20210216
  9. AMBROXOL HYDROCHLORIDE [Concomitant]
     Active Substance: AMBROXOL HYDROCHLORIDE
     Indication: Sputum retention
     Dosage: PATIENT ROA: OTHER
  10. ERYTHROCIN [Concomitant]
     Active Substance: ERYTHROMYCIN LACTOBIONATE
     Indication: Sputum retention
     Dosage: DOSAGE TEXT:0.3G-0.8G/DAY?PATIENT ROA: OTHER
  11. TULOBUTEROL [Concomitant]
     Active Substance: TULOBUTEROL
     Indication: Respiratory disorder
     Dosage: PATIENT ROA: OTHER
  12. BUDESONIDE [Concomitant]
     Active Substance: BUDESONIDE
     Indication: Respiratory disorder
  13. BIFIDOBACTERIUM SPP. [Concomitant]
     Active Substance: BIFIDOBACTERIUM SPP.
     Indication: Defaecation disorder
     Dosage: PATIENT ROA: OTHER
  14. GLYCERIN [Concomitant]
     Active Substance: GLYCERIN
     Indication: Constipation
     Dosage: PATIENT ROA: OTHER
  15. MIDAZOLAM [Concomitant]
     Active Substance: MIDAZOLAM
     Indication: Anaesthesia procedure
     Dosage: DOSAGE TEXT:0.5MG-1.0MG/DAY;FREQUENCY TEXT:AT EACH SPINRAZA ADMINISTRATION

REACTIONS (6)
  - Mechanical ventilation complication [Fatal]
  - Dysphagia [Recovered/Resolved with Sequelae]
  - Pneumonia aspiration [Recovered/Resolved]
  - Respiratory failure [Recovered/Resolved with Sequelae]
  - Incorrect drug administration rate [Unknown]
  - Hepatic enzyme increased [Recovered/Resolved]

NARRATIVE: CASE EVENT DATE: 20200619
